FAERS Safety Report 6283916-3 (Version None)
Quarter: 2009Q3

REPORT INFORMATION
  Report Type: 
  Country: None (occurrence: None)
  Receive Date: 20090722
  Receipt Date: 20090722
  Transmission Date: 20100115
  Serious: Yes (Other)
  Sender: FDA-Public Use
  Company Number: None

PATIENT
  Age: 28 Year
  Sex: Female
  Weight: 51 kg

DRUGS (1)
  1. TAMIFLU [Suspect]
     Indication: INFLUENZA
     Dosage: 75MG BID PO
     Route: 048
     Dates: start: 20090506, end: 20090511

REACTIONS (6)
  - DYSPHAGIA [None]
  - FOREIGN BODY TRAUMA [None]
  - OROPHARYNGEAL DISCOMFORT [None]
  - SEASONAL ALLERGY [None]
  - SWOLLEN TONGUE [None]
  - TONGUE DISORDER [None]
